FAERS Safety Report 7825181-9 (Version None)
Quarter: 2011Q4

REPORT INFORMATION
  Report Type: 
  Country: None (occurrence: None)
  Receive Date: 20111019
  Receipt Date: 20111014
  Transmission Date: 20120403
  Serious: Yes (Hospitalization, Other)
  Sender: FDA-Public Use
  Company Number: GB-PFIZER INC-2011187816

PATIENT
  Sex: Male

DRUGS (1)
  1. SUTENT [Suspect]
     Dosage: 50 MG, 1X/DAY
     Route: 048

REACTIONS (5)
  - RENAL IMPAIRMENT [None]
  - BACK PAIN [None]
  - HEPATIC FUNCTION ABNORMAL [None]
  - ASTHENIA [None]
  - MALAISE [None]
